FAERS Safety Report 21080356 (Version 2)
Quarter: 2023Q1

REPORT INFORMATION
  Report Type: Other
  Country: US (occurrence: None)
  Receive Date: 20220714
  Receipt Date: 20230127
  Transmission Date: 20230417
  Serious: Yes (Other)
  Sender: FDA-Public Use
  Company Number: US-ROCHE-3134934

PATIENT
  Age: 67 Year
  Sex: Female

DRUGS (1)
  1. XELODA [Suspect]
     Active Substance: CAPECITABINE
     Indication: Colorectal cancer metastatic
     Dosage: TAKE 3 TABLETS BY MOUTH TWICE A DAY FOR 2 WEEKS ON, 1 WEEK OFF. TAKE WITH WATER AND WITHIN 30 MINUTE
     Route: 048

REACTIONS (2)
  - Brain neoplasm [Unknown]
  - Visual impairment [Unknown]
